FAERS Safety Report 7138127-6 (Version None)
Quarter: 2010Q4

REPORT INFORMATION
  Report Type: 
  Country: None (occurrence: None)
  Receive Date: 20101206
  Receipt Date: 20101129
  Transmission Date: 20110411
  Serious: Yes (Death, Other)
  Sender: FDA-Public Use
  Company Number: US-CELGENEUS-163-21880-10120055

PATIENT
  Age: 73 Year
  Sex: Female

DRUGS (11)
  1. REVLIMID [Suspect]
     Indication: MULTIPLE MYELOMA
     Route: 048
     Dates: start: 20090319, end: 20091110
  2. DECADRON [Suspect]
     Indication: MULTIPLE MYELOMA
     Route: 065
     Dates: start: 20090319, end: 20090401
  3. PROCRIT [Concomitant]
     Route: 065
  4. AREDIA [Concomitant]
     Route: 065
  5. AMLODIPINE [Concomitant]
     Route: 065
  6. ACYCLOVIR [Concomitant]
     Route: 065
  7. PRAVASTATIN [Concomitant]
     Route: 065
  8. GLIPIZIDE [Concomitant]
     Route: 065
  9. HYDROCHLOROTHIAZIDE [Concomitant]
     Route: 065
  10. LEVOTHROID [Concomitant]
     Route: 065
  11. WARFARIN [Concomitant]
     Route: 065

REACTIONS (3)
  - DEATH [None]
  - PANCYTOPENIA [None]
  - TREMOR [None]
